FAERS Safety Report 9985801 (Version 1)
Quarter: 2014Q1

REPORT INFORMATION
  Report Type: Spontaneous
  Country: AT (occurrence: AT)
  Receive Date: 20140307
  Receipt Date: 20140307
  Transmission Date: 20141002
  Serious: Yes (Other)
  Sender: FDA-Public Use
  Company Number: AT-ABBVIE-14P-009-1209868-00

PATIENT
  Age: 74 Year
  Sex: Female

DRUGS (23)
  1. DEPAKINE CHRONO [Suspect]
     Indication: PRODUCT USED FOR UNKNOWN INDICATION
     Dates: start: 20130606, end: 20130630
  2. DEPAKINE CHRONO [Suspect]
     Dates: start: 20130701, end: 20130701
  3. DEPAKINE CHRONO [Suspect]
     Dates: start: 20130702, end: 20130702
  4. DEPAKINE CHRONO [Suspect]
     Dates: start: 20130703, end: 20130704
  5. CYMBALTA [Suspect]
     Indication: PRODUCT USED FOR UNKNOWN INDICATION
     Dates: start: 201301, end: 20130619
  6. CYMBALTA [Suspect]
     Dates: start: 20130620, end: 20130624
  7. CYMBALTA [Suspect]
     Dates: start: 20130625, end: 20130627
  8. CYMBALTA [Suspect]
     Dates: start: 20130628, end: 20130701
  9. RISPERDAL [Suspect]
     Indication: PRODUCT USED FOR UNKNOWN INDICATION
     Dates: start: 20130604, end: 20130604
  10. RISPERDAL [Suspect]
     Dates: start: 20130605, end: 20130608
  11. RISPERDAL [Suspect]
     Dates: start: 20130609, end: 20130609
  12. RISPERDAL [Suspect]
     Dates: start: 20130610, end: 20130610
  13. RISPERDAL [Suspect]
     Dates: start: 20130611, end: 20130709
  14. BLOPRESS [Suspect]
     Indication: PRODUCT USED FOR UNKNOWN INDICATION
     Dates: start: 20130610
  15. ASS [Concomitant]
     Indication: PRODUCT USED FOR UNKNOWN INDICATION
     Dates: start: 20130518
  16. MYCOSTATIN [Concomitant]
     Indication: PRODUCT USED FOR UNKNOWN INDICATION
     Dates: start: 20130527, end: 20130701
  17. VALDOXAN [Concomitant]
     Indication: PRODUCT USED FOR UNKNOWN INDICATION
     Dates: start: 20130528, end: 20131103
  18. LYRICA [Concomitant]
     Indication: PRODUCT USED FOR UNKNOWN INDICATION
     Dates: start: 20130610, end: 20130903
  19. RIVOTRIL [Concomitant]
     Indication: PRODUCT USED FOR UNKNOWN INDICATION
     Dates: start: 20130618, end: 20130707
  20. TOLVON [Concomitant]
     Indication: PRODUCT USED FOR UNKNOWN INDICATION
     Dates: start: 20130624, end: 20130625
  21. TRITTICO [Concomitant]
     Indication: PRODUCT USED FOR UNKNOWN INDICATION
     Dates: start: 20130626, end: 20130704
  22. ADVANTAN [Concomitant]
     Indication: PRODUCT USED FOR UNKNOWN INDICATION
     Dates: start: 20130701, end: 20131027
  23. ZOLPIDEM TARTRATE [Concomitant]
     Indication: PRODUCT USED FOR UNKNOWN INDICATION
     Dates: end: 20130608

REACTIONS (3)
  - Fatigue [Unknown]
  - Hyponatraemia [Recovered/Resolved]
  - Confusional state [Unknown]
